FAERS Safety Report 4339910-2 (Version None)
Quarter: 2004Q2

REPORT INFORMATION
  Report Type: 
  Country: None (occurrence: None)
  Receive Date: 20040412
  Receipt Date: 20040405
  Transmission Date: 20050107
  Serious: Yes (Hospitalization)
  Sender: FDA-Public Use
  Company Number: 2004CG00678

PATIENT
  Age: 62 Year
  Sex: Female

DRUGS (16)
  1. OMEPRAZOLE [Suspect]
     Dosage: 20 MG QD PO
     Route: 048
     Dates: start: 20040121, end: 20040224
  2. BACTRIM DS [Suspect]
     Dosage: 1 DF QD PO
     Route: 048
     Dates: start: 20040122, end: 20040218
  3. TRIFLUCAN [Suspect]
     Dates: end: 20040201
  4. VINCRISTINE [Concomitant]
  5. DOXORUBICIN HCL [Concomitant]
  6. ALKERAN [Concomitant]
  7. IMOVANE [Concomitant]
  8. LEXOMIL [Concomitant]
  9. ATARAX /CAN/ [Concomitant]
  10. SPECIAFOLDINE [Concomitant]
  11. TIORFAN [Concomitant]
  12. TAMIK [Concomitant]
  13. MEDROL [Concomitant]
  14. ZOPHREN [Concomitant]
  15. CIPROFLOXACIN [Concomitant]
  16. OROKEN [Concomitant]

REACTIONS (7)
  - DYSPEPSIA [None]
  - EOSINOPHILIA [None]
  - HEADACHE [None]
  - HYPERTHERMIA [None]
  - RASH MACULO-PAPULAR [None]
  - SKIN GRAFT [None]
  - TOXIC SKIN ERUPTION [None]
